FAERS Safety Report 4826250-8 (Version None)
Quarter: 2005Q4

REPORT INFORMATION
  Report Type: 
  Country: None (occurrence: None)
  Receive Date: 20051109
  Receipt Date: 20051109
  Transmission Date: 20060501
  Serious: Yes (Hospitalization)
  Sender: FDA-Public Use
  Company Number: None

PATIENT
  Sex: Female

DRUGS (2)
  1. DOXIL [Suspect]
     Dosage: 50 MG Q28 DAY IV
     Route: 042
     Dates: start: 20051010, end: 20051010
  2. ATRASENTAN [Suspect]
     Dosage: 10 MG  Q DAY PO
     Route: 048
     Dates: start: 20051010, end: 20051018

REACTIONS (6)
  - CONSTIPATION [None]
  - NAUSEA [None]
  - ORAL INTAKE REDUCED [None]
  - PYREXIA [None]
  - TUMOUR NECROSIS [None]
  - VOMITING [None]
